FAERS Safety Report 24397452 (Version 1)
Quarter: 2024Q4

REPORT INFORMATION
  Report Type: Spontaneous
  Country: US (occurrence: US)
  Receive Date: 20241004
  Receipt Date: 20241004
  Transmission Date: 20250114
  Serious: Yes (Other)
  Sender: TEVA
  Company Number: US-TEVA-VS-3248684

PATIENT
  Sex: Female

DRUGS (1)
  1. CLOZAPINE [Suspect]
     Active Substance: CLOZAPINE
     Indication: Schizophrenia
     Dosage: TIME INTERVAL: 0.33333333 DAYS
     Route: 048

REACTIONS (9)
  - Bladder cancer [Unknown]
  - Upper respiratory tract infection [Unknown]
  - Fear [Unknown]
  - Myocardial infarction [Unknown]
  - Dizziness [Unknown]
  - Dehydration [Unknown]
  - Adverse drug reaction [Unknown]
  - Gastrooesophageal reflux disease [Unknown]
  - Drug ineffective [Unknown]

NARRATIVE: CASE EVENT DATE: 20240901
